FAERS Safety Report 8326573-4 (Version None)
Quarter: 2012Q2

REPORT INFORMATION
  Report Type: 
  Country: None (occurrence: None)
  Receive Date: 20120501
  Receipt Date: 20090806
  Transmission Date: 20120825
  Serious: No
  Sender: FDA-Public Use
  Company Number: US-TEVA-2009009310

PATIENT
  Sex: Male
  Weight: 86.26 kg

DRUGS (7)
  1. BENICAR [Concomitant]
     Indication: HYPERTENSION
     Route: 048
  2. NUVIGIL [Suspect]
     Indication: SLEEP APNOEA SYNDROME
     Dosage: 150 MILLIGRAM;
     Route: 048
     Dates: start: 20090610, end: 20090805
  3. DILTIAZEM [Concomitant]
     Indication: HYPERTENSION
     Dosage: 300 MILLIGRAM;
     Route: 048
  4. LIPITOR [Concomitant]
     Indication: HYPERCHOLESTEROLAEMIA
     Dosage: 40 MILLIGRAM;
     Route: 048
  5. TRICOR [Concomitant]
     Indication: HYPERCHOLESTEROLAEMIA
     Dosage: 245 MILLIGRAM;
     Route: 048
  6. NADOLOL [Concomitant]
     Indication: MIGRAINE
     Dosage: 80 MILLIGRAM;
     Route: 048
  7. DEPAKOTE [Concomitant]
     Indication: MIGRAINE
     Dosage: 1500 MILLIGRAM;
     Route: 048

REACTIONS (2)
  - DIZZINESS [None]
  - DRUG INEFFECTIVE [None]
